FAERS Safety Report 23592022 (Version 1)
Quarter: 2024Q1

REPORT INFORMATION
  Report Type: Spontaneous
  Country: DE (occurrence: DE)
  Receive Date: 20240304
  Receipt Date: 20240304
  Transmission Date: 20240409
  Serious: Yes (Other)
  Sender: FDA-Public Use
  Company Number: DE-ALNYLAM PHARMACEUTICALS, INC.-ALN-2024-001186

PATIENT

DRUGS (2)
  1. AMVUTTRA [Suspect]
     Active Substance: VUTRISIRAN
     Indication: Hereditary neuropathic amyloidosis
     Dosage: UNK, Q3
     Route: 065
     Dates: start: 2023, end: 2023
  2. AMVUTTRA [Suspect]
     Active Substance: VUTRISIRAN
     Indication: Adenomatous polyposis coli

REACTIONS (1)
  - Epilepsy [Unknown]
